FAERS Safety Report 21088735 (Version 9)
Quarter: 2022Q4

REPORT INFORMATION
  Report Type: Spontaneous
  Country: US (occurrence: US)
  Receive Date: 20220715
  Receipt Date: 20221229
  Transmission Date: 20230113
  Serious: No
  Sender: FDA-Public Use
  Company Number: US-NOVARTISTESTPH-NVSC2022US160017

PATIENT
  Age: 73 Year
  Sex: Female

DRUGS (4)
  1. TRAVATAN Z [Suspect]
     Active Substance: TRAVOPROST
     Indication: Product used for unknown indication
     Dosage: UNK (2.5ML)
     Route: 065
     Dates: start: 2019
  2. TRAVATAN Z [Suspect]
     Active Substance: TRAVOPROST
     Dosage: 1 DRP, QD (IN BOTH EYES), (ONCE NIGHTLY)
     Route: 065
  3. TRAVATAN Z [Suspect]
     Active Substance: TRAVOPROST
     Dosage: UNK
     Route: 065
  4. TRAVATAN Z [Suspect]
     Active Substance: TRAVOPROST
     Dosage: UNK
     Route: 065

REACTIONS (6)
  - Eye infection [Recovered/Resolved]
  - Eye irritation [Unknown]
  - Eyelid irritation [Unknown]
  - Product container issue [Unknown]
  - Product quality issue [Unknown]
  - Liquid product physical issue [Unknown]

NARRATIVE: CASE EVENT DATE: 20220705
